FAERS Safety Report 4806035-9 (Version None)
Quarter: 2005Q4

REPORT INFORMATION
  Report Type: 
  Country: None (occurrence: None)
  Receive Date: 20051019
  Receipt Date: 20051011
  Transmission Date: 20060501
  Serious: Yes (Other)
  Sender: FDA-Public Use
  Company Number: VISP-PR-0510S-0531

PATIENT
  Age: 50 Year
  Sex: Female

DRUGS (1)
  1. VISIPAQUE [Suspect]
     Indication: MEDICAL DEVICE COMPLICATION
     Dosage: 125 ML, SINGLE DOSE, I.V.
     Route: 042
     Dates: start: 20050817, end: 20050817

REACTIONS (3)
  - NAUSEA [None]
  - PANCREATITIS [None]
  - VOMITING [None]
